FAERS Safety Report 7202660-9 (Version None)
Quarter: 2010Q4

REPORT INFORMATION
  Report Type: 
  Country: None (occurrence: None)
  Receive Date: 20101229
  Receipt Date: 20101217
  Transmission Date: 20110411
  Serious: Yes (Death, Hospitalization)
  Sender: FDA-Public Use
  Company Number: US-ACTELION-A-NJ2007-17405

PATIENT

DRUGS (1)
  1. BOSENTAN TABLET UNKNOWN US MG [Suspect]
     Indication: PULMONARY ARTERIAL HYPERTENSION
     Dosage: UNK
     Route: 048
     Dates: start: 20041123, end: 20101201

REACTIONS (6)
  - ERYTHEMA [None]
  - HEADACHE [None]
  - LOWER LIMB FRACTURE [None]
  - LUNG CANCER METASTATIC [None]
  - PAIN IN EXTREMITY [None]
  - THROMBOSIS [None]
